FAERS Safety Report 21763285 (Version 4)
Quarter: 2025Q3

REPORT INFORMATION
  Report Type: Report from Study
  Country: US (occurrence: US)
  Receive Date: 20221221
  Receipt Date: 20250710
  Transmission Date: 20251020
  Serious: Yes (Hospitalization, Other)
  Sender: JAZZ
  Company Number: US-GW PHARMA-2022-US-038024

PATIENT
  Sex: Male

DRUGS (3)
  1. EPIDIOLEX [Suspect]
     Active Substance: CANNABIDIOL
     Indication: Epilepsy
     Dosage: 2.5 MILLILITER, BID VIA G-TUBE
     Dates: start: 202202
  2. EPIDIOLEX [Suspect]
     Active Substance: CANNABIDIOL
     Indication: Conversion disorder
     Dates: start: 202202
  3. EPIDIOLEX [Suspect]
     Active Substance: CANNABIDIOL
     Indication: Partial seizures

REACTIONS (8)
  - Hospitalisation [Unknown]
  - Pneumothorax [Unknown]
  - Pneumonia [Unknown]
  - Product administration interrupted [Unknown]
  - Seizure [Unknown]
  - Sleep terror [Unknown]
  - Weight decreased [Unknown]
  - Off label use [Unknown]
